FAERS Safety Report 8895707 (Version 2)
Quarter: 2012Q4

REPORT INFORMATION
  Report Type: 
  Country: US (occurrence: US)
  Receive Date: 20121108
  Receipt Date: 20121126
  Transmission Date: 20130627
  Serious: Yes (Hospitalization)
  Sender: FDA-Public Use
  Company Number: US-CELGENEUS-163-21880-12110170

PATIENT
  Age: 60 Year
  Sex: Female

DRUGS (23)
  1. REVLIMID [Suspect]
     Indication: ACUTE MYELOID LEUKEMIA
     Dosage: 5 Milligram
     Route: 048
     Dates: start: 20090122, end: 20121005
  2. PAXIL CR [Concomitant]
     Indication: DRUG USE FOR UNKNOWN INDICATION
     Dosage: 25 Milligram
  3. PREDNISONE [Concomitant]
     Indication: DRUG USE FOR UNKNOWN INDICATION
     Dosage: 10 Milligram
     Route: 065
  4. PREDNISONE [Concomitant]
     Dosage: 30 Milligram
     Route: 065
     Dates: start: 20120816
  5. GABAPENTIN [Concomitant]
     Indication: DRUG USE FOR UNKNOWN INDICATION
     Route: 065
  6. GABAPENTIN [Concomitant]
     Route: 065
     Dates: start: 2012
  7. LEVOTHYROXINE [Concomitant]
     Indication: DRUG USE FOR UNKNOWN INDICATION
     Route: 065
  8. NASOCORT [Concomitant]
     Indication: DRUG USE FOR UNKNOWN INDICATION
     Route: 065
  9. PROCRIT [Concomitant]
     Indication: DRUG USE FOR UNKNOWN INDICATION
     Route: 065
  10. LEVOXYL [Concomitant]
     Indication: DRUG USE FOR UNKNOWN INDICATION
     Dosage: 75 Microgram
     Route: 065
     Dates: start: 2008
  11. LEVOXYL [Concomitant]
     Dosage: 100 Microgram
     Route: 065
     Dates: start: 20110112
  12. LEVOXYL [Concomitant]
     Dosage: 100 Microgram
     Route: 065
     Dates: start: 2012
  13. MORPHINE SULFATE [Concomitant]
     Indication: DRUG USE FOR UNKNOWN INDICATION
     Dosage: 100mg/5ml
     Route: 065
     Dates: start: 20120905
  14. MORPHINE SULFATE [Concomitant]
     Dosage: 100mg
     Route: 065
     Dates: start: 20121031
  15. FENTANYL [Concomitant]
     Indication: DRUG USE FOR UNKNOWN INDICATION
     Dosage: 20mcg/hr
     Route: 065
     Dates: start: 20121031
  16. SULFAMETHOXAZOLE/TRIMETHOPRIM [Concomitant]
     Indication: DRUG USE FOR UNKNOWN INDICATION
     Route: 065
     Dates: start: 20121003
  17. ONDANSETRON ODT [Concomitant]
     Indication: DRUG USE FOR UNKNOWN INDICATION
     Dosage: 8 Milligram
     Route: 065
     Dates: start: 20121003
  18. LORAZEPAM [Concomitant]
     Indication: DRUG USE FOR UNKNOWN INDICATION
     Dosage: 2mg/ml
     Route: 048
     Dates: start: 201208
  19. PAROXETINE ER [Concomitant]
     Indication: DRUG USE FOR UNKNOWN INDICATION
     Dosage: 37.5 Milligram
     Route: 065
     Dates: start: 201112
  20. PRILOSEC [Concomitant]
     Indication: DRUG USE FOR UNKNOWN INDICATION
     Dosage: 1 Dosage forms
     Route: 065
     Dates: start: 20090414
  21. ACTONEL [Concomitant]
     Indication: DRUG USE FOR UNKNOWN INDICATION
     Dosage: 4.2857 Milligram
     Route: 065
     Dates: start: 20090121
  22. CALCIUM + D [Concomitant]
     Indication: DRUG USE FOR UNKNOWN INDICATION
     Dosage: 2 Dosage forms
     Route: 065
     Dates: start: 20090121
  23. TYLENOL [Concomitant]
     Indication: DRUG USE FOR UNKNOWN INDICATION
     Dosage: 500 Milligram
     Route: 065
     Dates: start: 20050115

REACTIONS (3)
  - Gastrointestinal disorder [Recovered/Resolved]
  - Diarrhoea [Recovered/Resolved]
  - Malaise [Unknown]
